FAERS Safety Report 22276533 (Version 1)
Quarter: 2023Q2

REPORT INFORMATION
  Report Type: Report from Study
  Country: US (occurrence: US)
  Receive Date: 20230503
  Receipt Date: 20230503
  Transmission Date: 20230721
  Serious: Yes (Other)
  Sender: FDA-Public Use
  Company Number: US-ABBVIE-4706080

PATIENT
  Age: 56 Year
  Sex: Male

DRUGS (2)
  1. SKYRIZI [Suspect]
     Active Substance: RISANKIZUMAB-RZAA
     Indication: Psoriasis
     Dosage: WEEK 0, FORM STRENGTH: 150 MILLIGRAM
     Route: 058
     Dates: start: 20230225, end: 20230225
  2. SKYRIZI [Suspect]
     Active Substance: RISANKIZUMAB-RZAA
     Dosage: WEEKS 4
     Route: 058
     Dates: start: 20230325

REACTIONS (8)
  - Neoplasm malignant [Unknown]
  - Lymphadenopathy [Unknown]
  - Psoriasis [Not Recovered/Not Resolved]
  - Insomnia [Unknown]
  - Scab [Not Recovered/Not Resolved]
  - Skin haemorrhage [Not Recovered/Not Resolved]
  - Drug ineffective [Unknown]
  - Oral pain [Unknown]

NARRATIVE: CASE EVENT DATE: 20230301
